FAERS Safety Report 25917419 (Version 1)
Quarter: 2025Q4

REPORT INFORMATION
  Report Type: Spontaneous
  Country: US (occurrence: US)
  Receive Date: 20251014
  Receipt Date: 20251014
  Transmission Date: 20260118
  Serious: No
  Sender: AMGEN
  Company Number: US-AMGEN-USASP2025202229

PATIENT
  Age: 79 Year
  Sex: Female

DRUGS (13)
  1. REPATHA [Suspect]
     Active Substance: EVOLOCUMAB
     Indication: Blood cholesterol increased
     Dosage: 140 MILLIGRAM, Q2WK
     Route: 065
     Dates: start: 20250921
  2. DILTIAZEM [Concomitant]
     Active Substance: DILTIAZEM
     Indication: Arrhythmia
     Dosage: UNK
     Route: 065
  3. CLONAZEPAM [Concomitant]
     Active Substance: CLONAZEPAM
     Indication: Sleep apnoea syndrome
     Dosage: 0.5 MILLIGRAM
     Route: 065
  4. SYNTHROID [Concomitant]
     Active Substance: LEVOTHYROXINE SODIUM
     Indication: Type 2 diabetes mellitus
     Dosage: UNK
     Route: 065
  5. METFORMIN [Concomitant]
     Active Substance: METFORMIN HYDROCHLORIDE
     Indication: Type 2 diabetes mellitus
     Dosage: UNK
     Route: 065
  6. PANTOPRAZOLE [Concomitant]
     Active Substance: PANTOPRAZOLE
     Indication: Hypersensitivity
     Dosage: UNK
     Route: 065
  7. ALLEGRA [Concomitant]
     Active Substance: FEXOFENADINE HYDROCHLORIDE
     Indication: Hypersensitivity
     Dosage: UNK
     Route: 065
  8. GAS-X [Concomitant]
     Active Substance: DIMETHICONE
     Dosage: UNK UNK, QID
     Route: 065
  9. GLUCOSAMINE [Concomitant]
     Active Substance: GLUCOSAMINE
     Indication: Eye disorder
     Dosage: UNK
     Route: 065
  10. CHONDROITIN [Concomitant]
     Active Substance: CHONDROITIN
     Indication: Eye disorder
     Dosage: UNK
  11. MAGNESIUM CITRATE [Concomitant]
     Active Substance: MAGNESIUM CITRATE
     Dosage: UNK
  12. MELATONIN [Concomitant]
     Active Substance: MELATONIN
     Dosage: UNK
  13. CALCIUM [Concomitant]
     Active Substance: CALCIUM

REACTIONS (5)
  - Headache [Unknown]
  - Blood pressure increased [Unknown]
  - Nausea [Unknown]
  - Fatigue [Unknown]
  - Diarrhoea [Recovered/Resolved]

NARRATIVE: CASE EVENT DATE: 20250101
